FAERS Safety Report 9096862 (Version 1)
Quarter: 2013Q1

REPORT INFORMATION
  Report Type: Spontaneous
  Country: CO (occurrence: CO)
  Receive Date: 20130211
  Receipt Date: 20130211
  Transmission Date: 20140127
  Serious: Yes (Death, Hospitalization)
  Sender: FDA-Public Use
  Company Number: PHHY2013CO012061

PATIENT
  Age: 51 Year
  Sex: Female

DRUGS (3)
  1. AFINITOR [Suspect]
     Indication: BREAST CANCER STAGE IV
     Dosage: 10 MG, PER DAY
     Dates: start: 20121224
  2. LETROZOLE [Concomitant]
     Indication: BREAST CANCER STAGE IV
     Dates: start: 201212
  3. IBANDRONATE [Concomitant]

REACTIONS (9)
  - Leukopenia [Fatal]
  - Thrombocytopenia [Fatal]
  - General physical health deterioration [Fatal]
  - Pyrexia [Fatal]
  - Arthralgia [Fatal]
  - Petechiae [Fatal]
  - Dengue fever [Fatal]
  - Urinary tract infection [Fatal]
  - Sepsis [Fatal]
